FAERS Safety Report 19778715 (Version 1)
Quarter: 2021Q3

REPORT INFORMATION
  Report Type: Spontaneous
  Country: NL (occurrence: NL)
  Receive Date: 20210902
  Receipt Date: 20210902
  Transmission Date: 20211014
  Serious: Yes (Life-Threatening, Hospitalization, Other)
  Sender: FDA-Public Use
  Company Number: NL-LEADINGPHARMA-NL-2021LEALIT00264

PATIENT
  Age: 18 Year
  Sex: Female
  Weight: 50 kg

DRUGS (4)
  1. QUETIAPINE. [Suspect]
     Active Substance: QUETIAPINE
     Indication: PRODUCT USED FOR UNKNOWN INDICATION
     Dosage: 25 MG 100 TABLETS
     Route: 048
  2. ACTIVATED CHARCOAL. [Interacting]
     Active Substance: ACTIVATED CHARCOAL
     Indication: SUPPORTIVE CARE
     Route: 065
  3. CLOMIPRAMINE HCL [Suspect]
     Active Substance: CLOMIPRAMINE
     Indication: PRODUCT USED FOR UNKNOWN INDICATION
     Dosage: 75 MG 50 TABLETS
     Route: 048
  4. SODIUM BICARBONATE. [Interacting]
     Active Substance: SODIUM BICARBONATE
     Indication: SUPPORTIVE CARE
     Route: 065

REACTIONS (3)
  - Intentional overdose [Recovered/Resolved]
  - Bezoar [Recovered/Resolved]
  - Poisoning [Recovered/Resolved]
